FAERS Safety Report 10342513 (Version 3)
Quarter: 2014Q3

REPORT INFORMATION
  Report Type: Report from Study
  Country: US (occurrence: US)
  Receive Date: 20140725
  Receipt Date: 20140915
  Transmission Date: 20150326
  Serious: Yes (Other)
  Sender: FDA-Public Use
  Company Number: US-SA-2014SA097416

PATIENT
  Age: 69 Year
  Sex: Female
  Weight: 69.8 kg

DRUGS (4)
  1. HUMALOG [Concomitant]
     Active Substance: INSULIN LISPRO
  2. LANTUS [Suspect]
     Active Substance: INSULIN GLARGINE
     Indication: TYPE 2 DIABETES MELLITUS
     Dosage: 12 U 3X DAY, 48-50 U AT BEDTIME
     Route: 065
  3. LASIX [Concomitant]
     Active Substance: FUROSEMIDE
  4. ALDACTONE [Concomitant]
     Active Substance: SPIRONOLACTONE
     Dosage: STRENGTH:100 MG

REACTIONS (4)
  - Liver transplant [Unknown]
  - Drug administration error [Unknown]
  - Eye degenerative disorder [Unknown]
  - Renal disorder [Unknown]
